FAERS Safety Report 6371634-2 (Version None)
Quarter: 2009Q3

REPORT INFORMATION
  Report Type: 
  Country: None (occurrence: None)
  Receive Date: 20090923
  Receipt Date: 20080410
  Transmission Date: 20100115
  Serious: Yes (Other)
  Sender: FDA-Public Use
  Company Number: US-ASTRAZENECA-2008UW01174

PATIENT
  Age: 464 Month
  Sex: Female

DRUGS (13)
  1. SEROQUEL [Suspect]
     Indication: DEPRESSION
     Route: 048
     Dates: start: 20040301, end: 20050601
  2. SEROQUEL [Suspect]
     Indication: ANXIETY
     Route: 048
     Dates: start: 20040301, end: 20050601
  3. SEROQUEL [Suspect]
     Indication: BIPOLAR DISORDER
     Route: 048
     Dates: start: 20040301, end: 20050601
  4. DEPAKOTE [Concomitant]
  5. AMBIEN [Concomitant]
  6. ALPRAZOLAM [Concomitant]
  7. CITALOPRAM HYDROBROMIDE [Concomitant]
  8. CYCLOBENZAPRINE HCL [Concomitant]
  9. WELLBUTRIN XL [Concomitant]
  10. TRIAZOLAM [Concomitant]
  11. PHENERGAN [Concomitant]
  12. DESIPRAMINE HYDROCHLORIDE [Concomitant]
  13. LEXAPRO [Concomitant]

REACTIONS (1)
  - DIABETIC COMA [None]
